FAERS Safety Report 8473039 (Version 5)
Quarter: 2013Q3

REPORT INFORMATION
  Report Type: Report from Study
  Country: CA (occurrence: CA)
  Receive Date: 20120322
  Receipt Date: 20130809
  Transmission Date: 20140515
  Serious: Yes (Other)
  Sender: FDA-Public Use
  Company Number: PHHY2010CA79680

PATIENT
  Age: 67 Year
  Sex: Female
  Weight: 61.5 kg

DRUGS (10)
  1. ACLASTA/ZOLEDRONATE [Suspect]
     Indication: OSTEOPOROSIS
     Dosage: 5 MG, UNK
     Route: 042
     Dates: start: 20091211
  2. ACLASTA/ZOLEDRONATE [Suspect]
     Dosage: 5 MG, UNK
     Route: 042
     Dates: start: 20110608
  3. ACLASTA/ZOLEDRONATE [Suspect]
     Dosage: 5 MG, UNK
     Route: 042
     Dates: start: 20120608
  4. CALCIUM [Concomitant]
     Dosage: 500 MG, BID
     Dates: start: 200910
  5. VITAMIN D [Concomitant]
     Dosage: 10000 IU, UNK
     Dates: start: 200910
  6. EVISTA [Concomitant]
     Dosage: 670 MG, QD
  7. DIDROCAL [Concomitant]
     Dosage: 400 MG, UNK
  8. HORMONES [Concomitant]
  9. FORTEO [Concomitant]
     Dosage: 20 MG, UNK
  10. MIACALCIN [Concomitant]
     Dosage: 200 IU, UNK

REACTIONS (6)
  - Endometrial cancer [Unknown]
  - Pelvic adhesions [Unknown]
  - Endometriosis [Unknown]
  - Metastases to liver [Unknown]
  - Ovarian cancer [Unknown]
  - Pain [Unknown]
